FAERS Safety Report 23331897 (Version 1)
Quarter: 2023Q4

REPORT INFORMATION
  Report Type: Spontaneous
  Country: US (occurrence: None)
  Receive Date: 20231218
  Receipt Date: 20231218
  Transmission Date: 20240109
  Serious: Yes (Life-Threatening, Hospitalization)
  Sender: FDA-Public Use
  Company Number: None

PATIENT
  Age: 37 Year
  Sex: Female
  Weight: 77.3 kg

DRUGS (7)
  1. OPDUALAG [Suspect]
     Active Substance: NIVOLUMAB\RELATLIMAB-RMBW
     Indication: Malignant melanoma
     Dosage: OTHER FREQUENCY : ONCE EVERY 28 DAYS;?
     Route: 042
     Dates: start: 2023, end: 20231009
  2. Famotidine 20 mg Tablet [Concomitant]
     Dates: start: 2023
  3. K-Phos 500 mg Tablet [Concomitant]
     Dates: start: 2023
  4. Ondansetron 8 mg ODT [Concomitant]
     Dates: start: 2023
  5. Synthroid 125 mcg Tablet [Concomitant]
     Dates: start: 2023
  6. Vyvanse 70 mg Capsule [Concomitant]
     Dates: start: 2023
  7. ZYRTEC [Concomitant]
     Active Substance: CETIRIZINE HYDROCHLORIDE
     Dates: start: 2023

REACTIONS (2)
  - Hypophosphataemia [None]
  - Generalised tonic-clonic seizure [None]

NARRATIVE: CASE EVENT DATE: 20230414
